FAERS Safety Report 10170639 (Version 2)
Quarter: 2014Q4

REPORT INFORMATION
  Report Type: Other
  Country: IT (occurrence: IT)
  Receive Date: 20140514
  Receipt Date: 20141126
  Transmission Date: 20150528
  Serious: Yes (Hospitalization)
  Sender: FDA-Public Use
  Company Number: IT-SUN PHARMACEUTICAL INDUSTRIES LTD-2014SUN01029

PATIENT

DRUGS (3)
  1. FLUOROURACILE [Suspect]
     Active Substance: FLUOROURACIL
     Indication: PRODUCT USED FOR UNKNOWN INDICATION
     Dosage: 3500 MG CYCLIC
     Route: 042
     Dates: start: 20131218, end: 20140305
  2. OXALIPLATIN. [Suspect]
     Active Substance: OXALIPLATIN
     Indication: PRODUCT USED FOR UNKNOWN INDICATION
     Dosage: 150 MG CYCLIC
     Route: 042
     Dates: start: 20131218, end: 20140305
  3. AVASTIN [Suspect]
     Active Substance: BEVACIZUMAB
     Indication: COLON CANCER METASTATIC
     Dosage: 360 MG CYCLIC
     Route: 042
     Dates: start: 20131218, end: 20140305

REACTIONS (1)
  - Gastrointestinal hypomotility [Unknown]

NARRATIVE: CASE EVENT DATE: 20140315
